FAERS Safety Report 22526215 (Version 1)
Quarter: 2023Q2

REPORT INFORMATION
  Report Type: Spontaneous
  Country: US (occurrence: US)
  Receive Date: 20230606
  Receipt Date: 20230606
  Transmission Date: 20230721
  Serious: Yes (Other)
  Sender: FDA-Public Use
  Company Number: US-MYLANLABS-2023M1059112

PATIENT
  Sex: Male
  Weight: 99.79 kg

DRUGS (6)
  1. SILDENAFIL [Suspect]
     Active Substance: SILDENAFIL
     Indication: Product used for unknown indication
     Dosage: 20 MILLIGRAM, TID
     Route: 065
     Dates: start: 202103
  2. XELJANZ XR [Concomitant]
     Active Substance: TOFACITINIB CITRATE
     Indication: Interstitial lung disease
     Dosage: 1 DOSAGE FORM, QD
     Route: 065
     Dates: start: 202002
  3. XELJANZ XR [Concomitant]
     Active Substance: TOFACITINIB CITRATE
     Indication: Dermatomyositis
  4. TACROLIMUS [Concomitant]
     Active Substance: TACROLIMUS
     Dosage: 1 MILLIGRAM, BID
     Route: 065
     Dates: start: 202002
  5. SULFASALAZINE [Concomitant]
     Active Substance: SULFASALAZINE
     Dosage: 50 MILLIGRAM, TID
     Route: 065
     Dates: start: 202108
  6. EL [Concomitant]
     Dosage: 500 MILLIGRAM
     Route: 065
     Dates: start: 202108

REACTIONS (1)
  - Thrombosis [Unknown]
